FAERS Safety Report 26021557 (Version 2)
Quarter: 2025Q4

REPORT INFORMATION
  Report Type: Report from Study
  Country: US (occurrence: US)
  Receive Date: 20251110
  Receipt Date: 20251114
  Transmission Date: 20260118
  Serious: Yes (Other)
  Sender: MALLINCKRODT
  Company Number: US-MALLINCKRODT-MNK202507001

PATIENT
  Age: 70 Year
  Sex: Female

DRUGS (1)
  1. CORTICOTROPIN [Suspect]
     Active Substance: CORTICOTROPIN
     Indication: Multiple sclerosis
     Dosage: 80 UNITS
     Route: 058
     Dates: start: 20251026, end: 20251105

REACTIONS (11)
  - Venous injury [Unknown]
  - Blood glucose increased [Unknown]
  - Visual impairment [Unknown]
  - Vision blurred [Unknown]
  - Muscle spasms [Unknown]
  - Asthenia [Unknown]
  - Decreased appetite [Unknown]
  - Injection site reaction [Unknown]
  - Fluid retention [Unknown]
  - Headache [Unknown]
  - Fatigue [Unknown]

NARRATIVE: CASE EVENT DATE: 20250101
